FAERS Safety Report 6022545-3 (Version None)
Quarter: 2008Q4

REPORT INFORMATION
  Report Type: 
  Country: None (occurrence: None)
  Receive Date: 20081230
  Receipt Date: 20081222
  Transmission Date: 20090506
  Serious: Yes (Death, Hospitalization)
  Sender: FDA-Public Use
  Company Number: PHHY2008JP22615

PATIENT
  Sex: Female
  Weight: 53.7 kg

DRUGS (10)
  1. NEORAL [Suspect]
     Indication: DERMATOMYOSITIS
     Dosage: 75 MG, BID
     Dates: start: 20061213, end: 20061213
  2. CELESTONE [Concomitant]
     Indication: DERMATOMYOSITIS
     Dosage: 4 MG
     Dates: start: 20061201
  3. CELESTONE [Concomitant]
     Dosage: 2 MG
  4. CELESTONE [Concomitant]
     Dosage: 1.8 MG
     Dates: end: 20070101
  5. PREDNISOLONE [Concomitant]
     Indication: DERMATOMYOSITIS
     Dosage: 45 MG/DAY
     Dates: end: 20081213
  6. ENDOXAN [Concomitant]
     Indication: INTERSTITIAL LUNG DISEASE
     Dosage: 500 MG
     Route: 042
     Dates: start: 20070101
  7. CYCLOPHOSPHAMIDE [Concomitant]
  8. IMMUNE GLOBULIN INTRAVENOUS (HUMAN) [Concomitant]
     Indication: DERMATOMYOSITIS
     Dosage: UNK
     Route: 042
     Dates: start: 20061201
  9. METHYLPREDNISOLONE 16MG TAB [Concomitant]
     Indication: DERMATOMYOSITIS
     Dosage: 1 G
     Dates: start: 20060101
  10. METHYLPREDNISOLONE 16MG TAB [Concomitant]
     Indication: INTERSTITIAL LUNG DISEASE
     Dosage: 1 G
     Dates: end: 20060101

REACTIONS (12)
  - ABDOMINAL OPERATION [None]
  - ANASTOMOTIC LEAK [None]
  - CELLULITIS [None]
  - CYTOMEGALOVIRUS INFECTION [None]
  - DIFFUSE ALVEOLAR DAMAGE [None]
  - EYE INFECTION FUNGAL [None]
  - FUNGAL INFECTION [None]
  - INTERSTITIAL LUNG DISEASE [None]
  - INTESTINAL PERFORATION [None]
  - PERITONITIS [None]
  - RASH [None]
  - RESPIRATORY FAILURE [None]
